FAERS Safety Report 18871071 (Version 1)
Quarter: 2021Q1

REPORT INFORMATION
  Report Type: Spontaneous
  Country: FR (occurrence: FR)
  Receive Date: 20210210
  Receipt Date: 20210210
  Transmission Date: 20210420
  Serious: Yes (Other)
  Sender: FDA-Public Use
  Company Number: FR-ORION CORPORATION ORION PHARMA-21_00012944

PATIENT
  Age: 72 Year
  Sex: Female
  Weight: 92 kg

DRUGS (12)
  1. STILNOX [Concomitant]
     Active Substance: ZOLPIDEM TARTRATE
     Dosage: STRENGTH: 10 MG
     Route: 048
  2. L THYROXINE SERB [Concomitant]
     Active Substance: LEVOTHYROXINE SODIUM
     Route: 048
  3. IZALGI [Concomitant]
     Active Substance: ACETAMINOPHEN\OPIUM
     Dosage: STRENGTH: 500 MG/25 MG
     Route: 065
  4. METHOTREXATE (TRADE NAME UNKNOWN) [Suspect]
     Active Substance: METHOTREXATE
     Indication: RHEUMATOID ARTHRITIS
     Route: 048
     Dates: start: 20080101
  5. INEXIUM [Concomitant]
     Active Substance: ESOMEPRAZOLE
     Dosage: STRENGTH: 40 MG
     Route: 048
  6. CORTANCYL [Concomitant]
     Active Substance: PREDNISONE
     Dosage: STRENGTH:  5 MG
     Route: 048
  7. DEROXAT [Concomitant]
     Active Substance: PAROXETINE HYDROCHLORIDE
     Dosage: STRENGTH: 20 MG
     Route: 048
  8. MONASCUS PURPUREUS [Concomitant]
     Active Substance: RED YEAST
     Route: 065
  9. TRIMEBUTINE [Concomitant]
     Active Substance: TRIMEBUTINE
     Route: 065
  10. LEXOMIL [Concomitant]
     Active Substance: BROMAZEPAM
     Dosage: STRENGTH: 6 MG
     Route: 048
  11. PLAVIX [Concomitant]
     Active Substance: CLOPIDOGREL BISULFATE
     Dosage: STRENGTH: 75 MG
     Route: 048
  12. LOVENOX [Concomitant]
     Active Substance: ENOXAPARIN SODIUM
     Route: 058
     Dates: start: 20201224

REACTIONS (1)
  - Neuroendocrine carcinoma of the skin [Not Recovered/Not Resolved]

NARRATIVE: CASE EVENT DATE: 202003
